FAERS Safety Report 21079485 (Version 1)
Quarter: 2022Q3

REPORT INFORMATION
  Report Type: Report from Study
  Country: US (occurrence: US)
  Receive Date: 20220714
  Receipt Date: 20220714
  Transmission Date: 20221026
  Serious: Yes (Other)
  Sender: FDA-Public Use
  Company Number: US-CELGENE-USA-20211202677

PATIENT
  Age: 39 Year
  Sex: Female

DRUGS (1)
  1. ZEPOSIA [Suspect]
     Active Substance: OZANIMOD HYDROCHLORIDE
     Indication: Multiple sclerosis
     Dosage: .92 MILLIGRAM
     Route: 048
     Dates: start: 20210808

REACTIONS (6)
  - Hypoaesthesia [Unknown]
  - Anal fissure [Unknown]
  - Pain [Unknown]
  - Fall [Unknown]
  - Gastrointestinal disorder [Unknown]
  - Dyspepsia [Unknown]
